FAERS Safety Report 6285693-9 (Version None)
Quarter: 2009Q3

REPORT INFORMATION
  Report Type: 
  Country: None (occurrence: None)
  Receive Date: 20090727
  Receipt Date: 20090720
  Transmission Date: 20100115
  Serious: No
  Sender: FDA-Public Use
  Company Number: US-VALEANT-2009VX001046

PATIENT
  Age: 57 Year
  Sex: Female
  Weight: 84 kg

DRUGS (4)
  1. MESTINON [Suspect]
     Indication: MYASTHENIA GRAVIS
     Route: 048
  2. ACIPHEX [Concomitant]
     Route: 065
  3. INSULIN [Concomitant]
     Route: 065
  4. LOPRESSOR [Concomitant]
     Route: 065

REACTIONS (3)
  - CONSTIPATION [None]
  - DYSPHAGIA [None]
  - THROAT IRRITATION [None]
